FAERS Safety Report 18283111 (Version 1)
Quarter: 2020Q3

REPORT INFORMATION
  Report Type: Spontaneous
  Country: JP (occurrence: JP)
  Receive Date: 20200918
  Receipt Date: 20200918
  Transmission Date: 20201103
  Serious: Yes (Other)
  Sender: FDA-Public Use
  Company Number: JP-SCIEGEN-2020SCILIT00279

PATIENT
  Age: 80 Year
  Sex: Female

DRUGS (5)
  1. DONEPEZIL HYDROCHLORIDE TABLETS [Suspect]
     Active Substance: DONEPEZIL HYDROCHLORIDE
     Indication: DEMENTIA ALZHEIMER^S TYPE
     Route: 048
  2. MAGNESIUM OXIDE. [Concomitant]
     Active Substance: MAGNESIUM OXIDE
     Route: 065
  3. DONEPEZIL HYDROCHLORIDE TABLETS [Suspect]
     Active Substance: DONEPEZIL HYDROCHLORIDE
     Route: 048
  4. FAMOTIDINE. [Concomitant]
     Active Substance: FAMOTIDINE
     Indication: CHRONIC GASTRITIS
     Route: 065
  5. SENNOSIDE [Concomitant]
     Active Substance: SENNOSIDES
     Route: 065

REACTIONS (1)
  - Cholinergic syndrome [Recovered/Resolved]
